FAERS Safety Report 7779323-4 (Version None)
Quarter: 2011Q3

REPORT INFORMATION
  Report Type: 
  Country: None (occurrence: None)
  Receive Date: 20110926
  Receipt Date: 20110915
  Transmission Date: 20111222
  Serious: Yes (Hospitalization, Other)
  Sender: FDA-Public Use
  Company Number: US-BAXTER-2011BH029436

PATIENT
  Sex: Male

DRUGS (1)
  1. ADVATE [Suspect]
     Indication: HAEMOPHILIA
     Route: 042
     Dates: end: 20101201

REACTIONS (5)
  - HAEMARTHROSIS [None]
  - FALL [None]
  - HAEMORRHAGE [None]
  - ANGER [None]
  - DRUG HALF-LIFE REDUCED [None]
